FAERS Safety Report 6133377-X (Version None)
Quarter: 2009Q1

REPORT INFORMATION
  Report Type: 
  Country: None (occurrence: None)
  Receive Date: 20090325
  Receipt Date: 20090325
  Transmission Date: 20090719
  Serious: Yes (Disabling)
  Sender: FDA-Public Use
  Company Number: None

PATIENT
  Sex: Female
  Weight: 61.2356 kg

DRUGS (2)
  1. BISACODYL HALFLYTELY [Suspect]
     Indication: BOWEL PREPARATION
     Dosage: 2 TABLETS ONCE PO
     Route: 048
     Dates: start: 20090315, end: 20090315
  2. BISACODYL HALFLYTELY [Suspect]
     Indication: COLONOSCOPY
     Dosage: 2 TABLETS ONCE PO
     Route: 048
     Dates: start: 20090315, end: 20090315

REACTIONS (7)
  - ABDOMINAL PAIN [None]
  - DEHYDRATION [None]
  - FEAR [None]
  - FLATULENCE [None]
  - HYPOTHERMIA [None]
  - SCREAMING [None]
  - SENSATION OF HEAVINESS [None]
